FAERS Safety Report 7549852-7 (Version None)
Quarter: 2011Q2

REPORT INFORMATION
  Report Type: 
  Country: None (occurrence: None)
  Receive Date: 20110615
  Receipt Date: 20110606
  Transmission Date: 20111010
  Serious: Yes (Hospitalization)
  Sender: FDA-Public Use
  Company Number: US-ASTRAZENECA-2010SE23157

PATIENT
  Age: 52 Year
  Sex: Female

DRUGS (6)
  1. SYNTHROID [Concomitant]
  2. METFORMIN HCL [Concomitant]
  3. PREVASTAT [Concomitant]
  4. VERAPAMIL [Concomitant]
  5. ADVAIR DISKUS 100/50 [Concomitant]
  6. ARIMIDEX [Suspect]
     Route: 048

REACTIONS (9)
  - CHILLS [None]
  - HYPERTENSION [None]
  - SYNCOPE [None]
  - DIABETES MELLITUS [None]
  - INTERNAL FIXATION OF FRACTURE [None]
  - PYREXIA [None]
  - WRIST FRACTURE [None]
  - GENERAL PHYSICAL CONDITION ABNORMAL [None]
  - HEART RATE INCREASED [None]
